FAERS Safety Report 4329045-7 (Version None)
Quarter: 2004Q1

REPORT INFORMATION
  Report Type: 
  Country: None (occurrence: None)
  Receive Date: 20040331
  Receipt Date: 20040331
  Transmission Date: 20041129
  Serious: Yes (Other)
  Sender: FDA-Public Use
  Company Number: None

PATIENT
  Age: 48 Year
  Sex: Male
  Weight: 95.709 kg

DRUGS (2)
  1. LEXAPRO [Suspect]
     Indication: DEPRESSION
     Dosage: 1 PO Q DAY
     Route: 048
     Dates: start: 20040329, end: 20040331
  2. CLONIDINE HCL [Concomitant]

REACTIONS (10)
  - DYSGEUSIA [None]
  - FOOD INTOLERANCE [None]
  - INSOMNIA [None]
  - MANIA [None]
  - MYDRIASIS [None]
  - OLFACTORY NERVE DISORDER [None]
  - PALPITATIONS [None]
  - PAROSMIA [None]
  - SENSORY DISTURBANCE [None]
  - SKIN BURNING SENSATION [None]
